FAERS Safety Report 19519022 (Version 2)
Quarter: 2021Q3

REPORT INFORMATION
  Report Type: Report from Study
  Country: US (occurrence: US)
  Receive Date: 20210712
  Receipt Date: 20210821
  Transmission Date: 20211014
  Serious: Yes (Hospitalization, Other)
  Sender: FDA-Public Use
  Company Number: US-SA-2020SA101605

PATIENT
  Age: 74 Year
  Sex: Male

DRUGS (3)
  1. DUPILUMAB [Suspect]
     Active Substance: DUPILUMAB
     Indication: DERMATITIS ATOPIC
     Dosage: 600 MG, 1X
     Route: 058
     Dates: start: 20200206, end: 20200206
  2. BIAXIN [Concomitant]
     Active Substance: CLARITHROMYCIN
  3. DUPILUMAB [Suspect]
     Active Substance: DUPILUMAB
     Dosage: 300 MG, 1X
     Route: 058
     Dates: start: 20200220

REACTIONS (11)
  - Sinus congestion [Not Recovered/Not Resolved]
  - Autoimmune disorder [Unknown]
  - Skin disorder [Not Recovered/Not Resolved]
  - Dermatitis atopic [Not Recovered/Not Resolved]
  - Hypovitaminosis [Not Recovered/Not Resolved]
  - Tanning [Not Recovered/Not Resolved]
  - Blindness transient [Not Recovered/Not Resolved]
  - Transient ischaemic attack [Unknown]
  - Vitreous floaters [Recovered/Resolved]
  - Drug ineffective [Unknown]
  - Sinus disorder [Not Recovered/Not Resolved]

NARRATIVE: CASE EVENT DATE: 2020
